FAERS Safety Report 20222127 (Version 1)
Quarter: 2021Q4

REPORT INFORMATION
  Report Type: Other
  Country: CN (occurrence: None)
  Receive Date: 20211223
  Receipt Date: 20211223
  Transmission Date: 20220303
  Serious: Yes (Death, Other)
  Sender: FDA-Public Use
  Company Number: CN-ROCHE-2983417

PATIENT
  Age: 34 Year
  Sex: Female

DRUGS (4)
  1. BEVACIZUMAB [Suspect]
     Active Substance: BEVACIZUMAB
     Indication: Renal cell carcinoma
     Route: 065
     Dates: start: 20190616
  2. BEVACIZUMAB [Suspect]
     Active Substance: BEVACIZUMAB
     Indication: Leiomyoma
  3. EVEROLIMUS [Suspect]
     Active Substance: EVEROLIMUS
     Indication: Leiomyoma
     Route: 065
     Dates: start: 20190616
  4. EVEROLIMUS [Suspect]
     Active Substance: EVEROLIMUS
     Indication: Renal cell carcinoma

REACTIONS (4)
  - Neoplasm progression [Fatal]
  - Renal impairment [Unknown]
  - Hepatic function abnormal [Unknown]
  - Drug ineffective [Unknown]
